FAERS Safety Report 8283524-9 (Version None)
Quarter: 2012Q2

REPORT INFORMATION
  Report Type: 
  Country: None (occurrence: None)
  Receive Date: 20120413
  Receipt Date: 20120412
  Transmission Date: 20120825
  Serious: Yes (Death)
  Sender: FDA-Public Use
  Company Number: PHHY2012US031082

PATIENT
  Age: 55 Year
  Sex: Female

DRUGS (2)
  1. DEXAMETHASONE [Suspect]
     Indication: MALIGNANT MELANOMA
     Dosage: 12 MG, UNK
  2. RADIOTHERAPY [Suspect]
     Indication: MALIGNANT MELANOMA

REACTIONS (3)
  - APHASIA [None]
  - ENCEPHALITIS HERPES [None]
  - MENTAL STATUS CHANGES [None]
